FAERS Safety Report 26075479 (Version 1)
Quarter: 2025Q4

REPORT INFORMATION
  Report Type: Spontaneous
  Country: US (occurrence: US)
  Receive Date: 20251121
  Receipt Date: 20251121
  Transmission Date: 20260117
  Serious: No
  Sender: VERASTEM
  Company Number: US-VERASTEM-251007US-AFCPK-00675

PATIENT

DRUGS (1)
  1. AVMAPKI FAKZYNJA CO-PACK [Suspect]
     Active Substance: AVUTOMETINIB POTASSIUM\DEFACTINIB HYDROCHLORIDE
     Indication: Product used for unknown indication
     Dosage: AVMAPKI 3.2MG ORALLY TWICE WEEKLY, FAKZYNJA 200MG ORALLY
     Route: 048
     Dates: start: 202508

REACTIONS (3)
  - Rash [Recovered/Resolved]
  - Erythema [Not Recovered/Not Resolved]
  - Oedema [Recovered/Resolved]
